FAERS Safety Report 9337027 (Version 2)
Quarter: 2013Q2

REPORT INFORMATION
  Report Type: Spontaneous
  Country: AU (occurrence: AU)
  Receive Date: 20130607
  Receipt Date: 20130620
  Transmission Date: 20140414
  Serious: Yes (Hospitalization)
  Sender: FDA-Public Use
  Company Number: AU-NOVOPROD-378382

PATIENT
  Age: 63 Year
  Sex: Male

DRUGS (5)
  1. LEVEMIR FLEXPEN [Suspect]
     Indication: TYPE 2 DIABETES MELLITUS
     Route: 065
  2. NOVOMIX 30 [Suspect]
     Indication: TYPE 2 DIABETES MELLITUS
     Route: 065
  3. NOVOMIX 30 [Suspect]
     Route: 065
  4. BYETTA [Concomitant]
  5. METFORMIN [Concomitant]

REACTIONS (3)
  - Hospitalisation [Recovered/Resolved]
  - Weight increased [Recovered/Resolved]
  - Blood glucose abnormal [Recovered/Resolved]
